FAERS Safety Report 7364256-8 (Version None)
Quarter: 2011Q1

REPORT INFORMATION
  Report Type: 
  Country: None (occurrence: None)
  Receive Date: 20110321
  Receipt Date: 20110307
  Transmission Date: 20110831
  Serious: Yes (Other)
  Sender: FDA-Public Use
  Company Number: A0918765A

PATIENT

DRUGS (8)
  1. AZITHROMYCIN [Concomitant]
  2. METHYLPREDNISOLONE [Concomitant]
     Dosage: 60MG FOUR TIMES PER DAY
     Route: 042
  3. OSELTAMIVIR [Concomitant]
     Dosage: 150MG TWICE PER DAY
     Dates: start: 20110208
  4. NOREPINEPHRINE BITARTRATE [Concomitant]
  5. ZANAMIVIR [Suspect]
     Indication: H1N1 INFLUENZA
     Route: 042
     Dates: start: 20110223, end: 20110227
  6. PIPERACILLIN/TAZOBACTAM [Concomitant]
  7. VANCOMYCIN [Concomitant]
  8. CEFTRIAXONE [Concomitant]

REACTIONS (1)
  - NEUTROPENIA [None]
